FAERS Safety Report 7927130-1 (Version None)
Quarter: 2011Q4

REPORT INFORMATION
  Report Type: 
  Country: None (occurrence: None)
  Receive Date: 20111118
  Receipt Date: 20111116
  Transmission Date: 20120403
  Serious: Yes (Life-Threatening, Other)
  Sender: FDA-Public Use
  Company Number: FR-PFIZER INC-2011280273

PATIENT
  Age: 37 Year
  Sex: Female

DRUGS (1)
  1. CYTOTEC [Suspect]
     Indication: PROLONGED PREGNANCY
     Dosage: 50 UG, 2X/DAY
     Route: 067
     Dates: start: 20070213, end: 20070213

REACTIONS (7)
  - FIBRINOLYSIS [None]
  - CAESAREAN SECTION [None]
  - HAEMOGLOBIN DECREASED [None]
  - OFF LABEL USE [None]
  - UTERINE ATONY [None]
  - MATERNAL EXPOSURE DURING PREGNANCY [None]
  - THIRD STAGE POSTPARTUM HAEMORRHAGE [None]
